FAERS Safety Report 7340547-1 (Version None)
Quarter: 2011Q1

REPORT INFORMATION
  Report Type: 
  Country: None (occurrence: None)
  Receive Date: 20110301
  Receipt Date: 20110223
  Transmission Date: 20110831
  Serious: Yes (Death, Life-Threatening, Hospitalization)
  Sender: FDA-Public Use
  Company Number: 201102036

PATIENT
  Age: 76 Year
  Sex: Male
  Weight: 97.977 kg

DRUGS (9)
  1. ACETAMINOPHEN [Concomitant]
  2. OMEPRAZOLE [Concomitant]
  3. METOPROLOL SUCCINATE [Concomitant]
  4. XIAFLEX [Suspect]
     Indication: DUPUYTREN'S CONTRACTURE
     Dosage: 1 IN 1 D, INTRALESIONAL
     Dates: start: 20101207, end: 20101207
  5. LIDOCAINE 1%(LIDOCAINE) [Concomitant]
  6. BENAZEPRIL HCL (BENAZEPRIL HYDROCHLORIDE) [Concomitant]
  7. CRESTOR [Concomitant]
  8. CIPROFLOXACIN HCL [Concomitant]
  9. ASPIRIN [Concomitant]

REACTIONS (16)
  - PALLOR [None]
  - INTESTINAL ISCHAEMIA [None]
  - RENAL IMPAIRMENT [None]
  - OXYGEN SATURATION DECREASED [None]
  - CARDIO-RESPIRATORY ARREST [None]
  - HEART RATE DECREASED [None]
  - METABOLIC ACIDOSIS [None]
  - AORTIC ANEURYSM RUPTURE [None]
  - BLOOD PRESSURE SYSTOLIC INCREASED [None]
  - CEREBROVASCULAR ACCIDENT [None]
  - CEREBRAL ISCHAEMIA [None]
  - GALLBLADDER NECROSIS [None]
  - WOUND DEHISCENCE [None]
  - CONFUSIONAL STATE [None]
  - ABDOMINAL COMPARTMENT SYNDROME [None]
  - GASTROINTESTINAL NECROSIS [None]
